FAERS Safety Report 15023563 (Version 1)
Quarter: 2018Q2

REPORT INFORMATION
  Report Type: Spontaneous
  Country: US (occurrence: US)
  Receive Date: 20180525
  Receipt Date: 20180525
  Transmission Date: 20180711
  Serious: Yes (Hospitalization)
  Sender: FDA-Public Use
  Company Number: None

PATIENT
  Age: 67 Year
  Sex: Female

DRUGS (29)
  1. ZETIA [Concomitant]
     Active Substance: EZETIMIBE
  2. VITAMIN B COMPLEX [Concomitant]
     Active Substance: CYANOCOBALAMIN\DEXPANTHENOL\NIACINAMIDE\PYRIDOXINE HYDROCHLORIDE\RIBOFLAVIN 5^-PHOSPHATE SODIUM\THIAMINE HYDROCHLORIDE\VITAMIN B COMPLEX
  3. CLARITIN [Concomitant]
     Active Substance: LORATADINE
  4. OMPRAZOLE [Concomitant]
     Active Substance: OMEPRAZOLE
  5. VITAMIN D [Concomitant]
     Active Substance: CHOLECALCIFEROL
  6. VITAMIN E [Suspect]
     Active Substance: .ALPHA.-TOCOPHEROL
  7. ATORVASTATIN TAB [Concomitant]
     Active Substance: ATORVASTATIN
  8. CENTRUM [Concomitant]
     Active Substance: VITAMINS
  9. LUTEIN [Concomitant]
     Active Substance: LUTEIN
  10. VITAMIN C [Concomitant]
     Active Substance: ASCORBIC ACID
  11. ALLEORAALRG [Concomitant]
  12. CINNAMON CAP [Concomitant]
  13. IMITREX [Concomitant]
     Active Substance: SUMATRIPTAN SUCCINATE
  14. MINOCYCLINE [Concomitant]
     Active Substance: MINOCYCLINE\MINOCYCLINE HYDROCHLORIDE
  15. TRIFLUOPERAZ [Concomitant]
  16. ZYRTEC ALLGY [Concomitant]
  17. ASPIRIN. [Concomitant]
     Active Substance: ASPIRIN
  18. FEXFENADINE [Concomitant]
  19. LOSARTAN POT [Concomitant]
     Active Substance: LOSARTAN POTASSIUM
  20. SYNTHROID [Concomitant]
     Active Substance: LEVOTHYROXINE SODIUM
  21. CLONIDINE. [Concomitant]
     Active Substance: CLONIDINE
  22. TOPIRAMATE. [Concomitant]
     Active Substance: TOPIRAMATE
  23. NORDITROPIN [Suspect]
     Active Substance: SOMATROPIN
     Indication: DWARFISM
     Route: 058
     Dates: start: 20121120
  24. CALCIUM [Concomitant]
     Active Substance: CALCIUM
  25. CITALOPRAM [Concomitant]
     Active Substance: CITALOPRAM HYDROBROMIDE
  26. MAGNESIUM [Concomitant]
     Active Substance: MAGNESIUM
  27. OSTEO COMPLX [Concomitant]
  28. PRESERVOSOPM [Concomitant]
  29. NO DRUG NAME [Concomitant]

REACTIONS (2)
  - Diverticulitis [None]
  - Drug dose omission [None]
